FAERS Safety Report 13958538 (Version 4)
Quarter: 2018Q3

REPORT INFORMATION
  Report Type: Spontaneous
  Country: US (occurrence: US)
  Receive Date: 20170912
  Receipt Date: 20180823
  Transmission Date: 20181010
  Serious: Yes (Other)
  Sender: FDA-Public Use
  Company Number: US-PFIZER INC-2017394506

PATIENT
  Age: 56 Year
  Sex: Female

DRUGS (16)
  1. HYDRALAZINE [Concomitant]
     Active Substance: HYDRALAZINE HYDROCHLORIDE
     Indication: BLOOD PRESSURE MANAGEMENT
     Dosage: 40 MG, THRICE DAILY
     Route: 048
  2. CALCITRIOL. [Concomitant]
     Active Substance: CALCITRIOL
     Indication: CALCIUM METABOLISM DISORDER
     Dosage: 25 UG, ONCE DAILY
  3. LINZESS [Concomitant]
     Active Substance: LINACLOTIDE
     Indication: GASTROINTESTINAL INJURY
     Dosage: 72 UG, TWICE DAILY
  4. WARFARIN SODIUM. [Concomitant]
     Active Substance: WARFARIN SODIUM
     Indication: ANTICOAGULANT THERAPY
     Dosage: 5 MG, ONCE DAILY
     Route: 048
  5. VITAMIN D3 [Concomitant]
     Active Substance: CHOLECALCIFEROL
     Indication: CALCIUM METABOLISM DISORDER
     Dosage: 1000 IU, TWICE DAILY
  6. CALCIUM CARBONATE. [Concomitant]
     Active Substance: CALCIUM CARBONATE
     Indication: CALCIUM DEFICIENCY
     Dosage: 648 MG, THRICE DAILY
     Route: 048
  7. SENNA LAXATIVE [Concomitant]
     Active Substance: SENNOSIDES
     Indication: CHANGE OF BOWEL HABIT
     Dosage: UNK
  8. DORZOLAMIDE [Concomitant]
     Active Substance: DORZOLAMIDE
     Dosage: 1 GTT, TWICE DAILY (ONE DROP IN BOTH EYES)
  9. KETOROLAC [Concomitant]
     Active Substance: KETOROLAC\KETOROLAC TROMETHAMINE
     Dosage: 1 GTT, TWICE DAILY (ONE DROP IN RIGHT EYE)
  10. LEVOTHYROXINE. [Concomitant]
     Active Substance: LEVOTHYROXINE
     Indication: THYROID DISORDER
     Dosage: 115 MG, ONCE DAILY
  11. MAGNESIUM OXIDE. [Concomitant]
     Active Substance: MAGNESIUM OXIDE
     Indication: RENAL DISORDER
     Dosage: 400 MG, TWICE DAILY
  12. AMLODIPINE [Concomitant]
     Active Substance: AMLODIPINE BESYLATE
     Indication: BLOOD PRESSURE MANAGEMENT
     Dosage: 5 MG, ONCE DAILY
  13. FLECAINIDE [Concomitant]
     Active Substance: FLECAINIDE
     Indication: HEART RATE IRREGULAR
     Dosage: 75 MG, TWICE DAILY
  14. SODIUM BICARBONATE. [Concomitant]
     Active Substance: SODIUM BICARBONATE
     Indication: RENAL DISORDER
     Dosage: 650 MG, FOUR TIMES DAILY
  15. EFFEXOR XR [Suspect]
     Active Substance: VENLAFAXINE HYDROCHLORIDE
     Indication: HYPOTENSION
     Dosage: 37.5 MG, ONCE DAILY
     Route: 048
     Dates: start: 2007, end: 2017
  16. LOTEMAX [Concomitant]
     Active Substance: LOTEPREDNOL ETABONATE
     Indication: AUTOIMMUNE DISORDER
     Dosage: 1 GTT, TWICE DAILY (IN RIGHT EYE)
     Route: 047

REACTIONS (11)
  - Body height decreased [Unknown]
  - Somnolence [Unknown]
  - Cataract [Unknown]
  - Visual impairment [Not Recovered/Not Resolved]
  - Drug effective for unapproved indication [Unknown]
  - Allergic reaction to excipient [Unknown]
  - Hypoacusis [Unknown]
  - Contraindicated product administered [Unknown]
  - Disease progression [Unknown]
  - Hallucination, visual [Unknown]
  - Product use in unapproved indication [Unknown]

NARRATIVE: CASE EVENT DATE: 2007
